FAERS Safety Report 4530145-7 (Version None)
Quarter: 2004Q4

REPORT INFORMATION
  Report Type: 
  Country: None (occurrence: None)
  Receive Date: 20041215
  Receipt Date: 20041203
  Transmission Date: 20050328
  Serious: Yes (Other)
  Sender: FDA-Public Use
  Company Number: 2004105413

PATIENT
  Age: 43 Year
  Sex: Male
  Weight: 99.7913 kg

DRUGS (3)
  1. DOSTINEX [Suspect]
     Indication: PITUITARY TUMOUR BENIGN
     Dosage: SEE IMAGE
     Route: 048
     Dates: start: 20010101
  2. HYDROCORTISONE [Concomitant]
  3. LEVOTHYROXINE SODIUM (LEVOTHYROXINE) [Concomitant]

REACTIONS (10)
  - ANXIETY [None]
  - ARTHRALGIA [None]
  - DEPRESSION [None]
  - DIZZINESS [None]
  - GASTROOESOPHAGEAL REFLUX DISEASE [None]
  - IMPAIRED WORK ABILITY [None]
  - MYALGIA [None]
  - NERVOUSNESS [None]
  - PHOBIA [None]
  - VISION BLURRED [None]
